FAERS Safety Report 15878858 (Version 2)
Quarter: 2019Q3

REPORT INFORMATION
  Report Type: Report from Study
  Country: JP (occurrence: JP)
  Receive Date: 20190128
  Receipt Date: 20190809
  Transmission Date: 20191004
  Serious: Yes (Death, Life-Threatening, Hospitalization, Other)
  Sender: FDA-Public Use
  Company Number: JP-AMGEN-JPNCT2019012364

PATIENT
  Age: 93 Year
  Sex: Female

DRUGS (15)
  1. DARBEPOETIN ALFA [Suspect]
     Active Substance: DARBEPOETIN ALFA
     Indication: MYELODYSPLASTIC SYNDROME
     Dosage: 240 MICROGRAM, QWK
     Route: 065
     Dates: start: 20171109, end: 20171228
  2. PREDONINE [Concomitant]
     Active Substance: PREDNISOLONE
     Dosage: 10 MG
     Route: 048
     Dates: start: 20180807, end: 20180829
  3. LANSOPRAZOLE. [Concomitant]
     Active Substance: LANSOPRAZOLE
     Dosage: 15 MG
     Route: 048
     Dates: start: 20180830, end: 20181025
  4. RIZE [Concomitant]
     Active Substance: CLOTIAZEPAM
     Indication: INSOMNIA
     Dosage: 5 MG, UNK
     Route: 048
     Dates: end: 20181025
  5. CARVEDILOL. [Concomitant]
     Active Substance: CARVEDILOL
     Indication: HYPERTENSION
     Dosage: 2.5 MG
     Route: 048
     Dates: start: 20080830, end: 20181025
  6. DARBEPOETIN ALFA [Suspect]
     Active Substance: DARBEPOETIN ALFA
     Dosage: 240 MICROGRAM, QWK
     Route: 065
     Dates: start: 20180510, end: 20181018
  7. TALION [Concomitant]
     Dosage: 20 MG
     Route: 048
     Dates: start: 20180807, end: 20180814
  8. UNASYN [Concomitant]
     Active Substance: AMPICILLIN SODIUM\SULBACTAM SODIUM
     Dosage: 6 G
     Route: 065
     Dates: start: 20180720, end: 20180730
  9. ROCEPHIN [Concomitant]
     Active Substance: CEFTRIAXONE SODIUM
     Dosage: 2 G
     Route: 065
     Dates: start: 20181018, end: 20181019
  10. RENIVACE [Concomitant]
     Active Substance: ENALAPRIL
     Indication: HYPERTENSION
     Dosage: 5 MG
     Route: 048
     Dates: end: 20181025
  11. DARBEPOETIN ALFA [Suspect]
     Active Substance: DARBEPOETIN ALFA
     Dosage: 240 MICROGRAM, Q2WK
     Route: 065
     Dates: start: 20180208, end: 20180419
  12. DALACIN-S [Concomitant]
     Active Substance: CLINDAMYCIN
     Dosage: 900 MILLIGRAM
     Route: 065
     Dates: start: 20181022, end: 20181025
  13. BENET [Concomitant]
     Active Substance: RISEDRONATE SODIUM
     Dosage: 17.5 MG
     Route: 048
     Dates: start: 20180906, end: 20181025
  14. GRACEVIT [Concomitant]
     Active Substance: SITAFLOXACIN
     Dosage: 100 MG, UNK
     Route: 048
     Dates: start: 20180730, end: 20180806
  15. MEROPEN [Concomitant]
     Active Substance: MEROPENEM
     Dosage: 1.5 GRAM
     Route: 065
     Dates: start: 20181019, end: 20181025

REACTIONS (5)
  - Pneumonia bacterial [Recovering/Resolving]
  - Cerebral infarction [Not Recovered/Not Resolved]
  - Toxic skin eruption [Recovered/Resolved]
  - Pneumonia bacterial [Fatal]
  - Respiratory failure [Fatal]

NARRATIVE: CASE EVENT DATE: 20180720
